FAERS Safety Report 8604525 (Version 2)
Quarter: 2014Q1

REPORT INFORMATION
  Report Type: Spontaneous
  Country: US (occurrence: None)
  Receive Date: 20120323
  Receipt Date: 20130305
  Transmission Date: 20141002
  Serious: Yes (Disabling, Other)
  Sender: FDA-Public Use
  Company Number: 163-21880-11040975

PATIENT
  Age: 73 Year
  Sex: Male
  Weight: 77.11 kg

DRUGS (7)
  1. REVLIMID [Suspect]
     Indication: PLASMA CELL MYELOMA
     Dosage: 25 MG, DAILY X 21 DAYS, PO
     Route: 048
     Dates: start: 20110317, end: 20110601
  2. AMLODIPINE [Concomitant]
  3. DEXAMETHASONE [Concomitant]
  4. OMEPRAZOLE [Concomitant]
  5. FLOMAX (TAMSULOSIN HYDROCHLORIDE) [Concomitant]
  6. STEROID (CORTICOSTEOIDS) [Concomitant]
  7. MUSCLE RELAXANT [Concomitant]

REACTIONS (3)
  - Asthenia [None]
  - Muscle spasms [None]
  - Malaise [None]
